FAERS Safety Report 8509861 (Version 6)
Quarter: 2014Q2

REPORT INFORMATION
  Report Type: Spontaneous
  Country: CH (occurrence: CH)
  Receive Date: 20120413
  Receipt Date: 20140620
  Transmission Date: 20141212
  Serious: Yes (Other)
  Sender: FDA-Public Use
  Company Number: PHHY2012CH030084

PATIENT
  Age: 46 Year
  Sex: Male
  Weight: 93 kg

DRUGS (6)
  1. TASIGNA [Suspect]
     Indication: CHRONIC MYELOID LEUKAEMIA
     Dosage: 300 MG, BID
     Route: 048
     Dates: start: 20120208
  2. TASIGNA [Suspect]
     Dosage: 150 MG, QD
     Route: 048
     Dates: start: 20131126
  3. TASIGNA [Suspect]
     Dosage: 300 MG, BID
     Route: 048
  4. QUILONORM RETARD [Concomitant]
     Dosage: 450 MG, BID
     Route: 048
  5. SAROTEN RETARD [Concomitant]
     Dosage: 25 MG, QD
     Route: 048
  6. TETRALYSAL [Concomitant]
     Dosage: 300 MG, QD
     Route: 048

REACTIONS (14)
  - Pancreatitis [Recovered/Resolved]
  - Abdominal pain upper [Recovered/Resolved]
  - Lipase increased [Recovered/Resolved]
  - Depression [Not Recovered/Not Resolved]
  - Presbyopia [Not Recovered/Not Resolved]
  - Visual acuity reduced [Not Recovered/Not Resolved]
  - Impaired healing [Unknown]
  - Fatigue [Unknown]
  - Disturbance in attention [Unknown]
  - Alanine aminotransferase increased [Unknown]
  - Drug ineffective [Unknown]
  - Hair texture abnormal [Unknown]
  - Alopecia [Unknown]
  - Gamma-glutamyltransferase increased [Unknown]
